FAERS Safety Report 24936284 (Version 1)
Quarter: 2025Q1

REPORT INFORMATION
  Report Type: Spontaneous
  Country: AT (occurrence: AT)
  Receive Date: 20250206
  Receipt Date: 20250206
  Transmission Date: 20250409
  Serious: Yes (Other)
  Sender: EXELIXIS
  Company Number: AT-IPSEN Group, Research and Development-2024-23451

PATIENT
  Age: 54 Year
  Sex: Male

DRUGS (1)
  1. CABOMETYX [Suspect]
     Active Substance: CABOZANTINIB S-MALATE
     Indication: Renal cell carcinoma
     Route: 065
     Dates: start: 2017

REACTIONS (3)
  - Metastases to abdominal cavity [Unknown]
  - Adrenal gland cancer metastatic [Unknown]
  - Metastases to lung [Unknown]

NARRATIVE: CASE EVENT DATE: 20170619
